FAERS Safety Report 7214694-9 (Version None)
Quarter: 2011Q1

REPORT INFORMATION
  Report Type: 
  Country: None (occurrence: None)
  Receive Date: 20110107
  Receipt Date: 20100106
  Transmission Date: 20110831
  Serious: No
  Sender: FDA-Public Use
  Company Number: A0817745A

PATIENT
  Age: 60 Year
  Sex: Female

DRUGS (2)
  1. OTHER MEDICATIONS [Concomitant]
  2. LOVAZA [Suspect]
     Dosage: 2CAP TWICE PER DAY
     Route: 048
     Dates: start: 20090701, end: 20091101

REACTIONS (7)
  - NAUSEA [None]
  - ERUCTATION [None]
  - PRODUCT QUALITY ISSUE [None]
  - DYSGEUSIA [None]
  - ABDOMINAL DISCOMFORT [None]
  - FLATULENCE [None]
  - DIARRHOEA [None]
